FAERS Safety Report 16044365 (Version 1)
Quarter: 2019Q1

REPORT INFORMATION
  Report Type: Spontaneous
  Country: IT (occurrence: IT)
  Receive Date: 20190306
  Receipt Date: 20190306
  Transmission Date: 20190418
  Serious: Yes (Other)
  Sender: FDA-Public Use
  Company Number: PHHY2019IT048472

PATIENT
  Age: 47 Year
  Sex: Male

DRUGS (3)
  1. SERENASE [Concomitant]
     Indication: ANXIETY
     Dosage: 1 DF, UNK
     Route: 048
  2. PANTOPRAZOLE [Concomitant]
     Active Substance: PANTOPRAZOLE
     Indication: GASTRITIS EROSIVE
     Dosage: 40 MG, QD
     Route: 048
  3. ACETYLSALICYLIC ACID [Suspect]
     Active Substance: ASPIRIN
     Indication: CEREBROVASCULAR ACCIDENT
     Dosage: 100 MG, QD
     Route: 048
     Dates: start: 20070101

REACTIONS (2)
  - Abdominal pain [Recovering/Resolving]
  - Rectal haemorrhage [Recovering/Resolving]

NARRATIVE: CASE EVENT DATE: 20190211
